FAERS Safety Report 5739479-1 (Version None)
Quarter: 2008Q2

REPORT INFORMATION
  Report Type: 
  Country: None (occurrence: None)
  Receive Date: 20080515
  Receipt Date: 20080507
  Transmission Date: 20081010
  Serious: Yes (Other)
  Sender: FDA-Public Use
  Company Number: PHHY2008AU07373

PATIENT

DRUGS (5)
  1. ESTRADERM [Concomitant]
     Dosage: 8MG, WEEKLY
  2. ISOPTIN [Concomitant]
     Indication: ESSENTIAL HYPERTENSION
     Dosage: 120MG/DAILY
  3. FAMVIR [Suspect]
     Indication: HERPES ZOSTER
     Dosage: 3 DF, QD
     Route: 048
     Dates: start: 19970210, end: 19970213
  4. OROXINE [Concomitant]
     Dosage: 150 MG/D
  5. MODURETIC 5-50 [Concomitant]
     Indication: ESSENTIAL HYPERTENSION
     Dosage: 1 DF, QD

REACTIONS (4)
  - ATAXIA [None]
  - DIZZINESS [None]
  - NAUSEA [None]
  - VOMITING [None]
